FAERS Safety Report 4779989-7 (Version None)
Quarter: 2005Q3

REPORT INFORMATION
  Report Type: 
  Country: None (occurrence: None)
  Receive Date: 20050927
  Receipt Date: 20050824
  Transmission Date: 20060218
  Serious: Yes (Other)
  Sender: FDA-Public Use
  Company Number: 2005UW12704

PATIENT
  Age: 7 Month
  Sex: Female

DRUGS (3)
  1. LOSEC MUPS [Suspect]
     Indication: REFLUX OESOPHAGITIS
     Dosage: 1/2 15 MG TABLET DAILY
     Route: 050
  2. VITAMIN D [Concomitant]
  3. RANITIDINE [Concomitant]

REACTIONS (5)
  - APPLICATION SITE REACTION [None]
  - OFF LABEL USE [None]
  - STOMACH DISCOMFORT [None]
  - VOMITING [None]
  - WRONG TECHNIQUE IN DRUG USAGE PROCESS [None]
